FAERS Safety Report 4409416-0 (Version None)
Quarter: 2004Q2

REPORT INFORMATION
  Report Type: 
  Country: None (occurrence: None)
  Receive Date: 20040618
  Receipt Date: 20040512
  Transmission Date: 20050107
  Serious: No
  Sender: FDA-Public Use
  Company Number: US-JNJFOC-20040502803

PATIENT
  Age: 49 Year
  Sex: Female
  Weight: 47.6277 kg

DRUGS (3)
  1. ORTHO EVRA [Suspect]
     Indication: HEADACHE
     Dosage: 1 DOSE(S, 3 IN 4 WEEK, TRANSDERMAL
     Route: 062
  2. ORTHO EVRA [Suspect]
     Indication: MOOD SWINGS
     Dosage: 1 DOSE(S, 3 IN 4 WEEK, TRANSDERMAL
     Route: 062
  3. ACYCLOVIR [Concomitant]

REACTIONS (3)
  - HEADACHE [None]
  - NAUSEA [None]
  - RETCHING [None]
